FAERS Safety Report 12982565 (Version 2)
Quarter: 2016Q4

REPORT INFORMATION
  Report Type: Spontaneous
  Country: BR (occurrence: BR)
  Receive Date: 20161129
  Receipt Date: 20161206
  Transmission Date: 20170207
  Serious: Yes (Other)
  Sender: FDA-Public Use
  Company Number: PHHY2016BR160054

PATIENT
  Sex: Female
  Weight: 68 kg

DRUGS (5)
  1. CRESTOR [Suspect]
     Active Substance: ROSUVASTATIN CALCIUM
     Indication: PRODUCT USED FOR UNKNOWN INDICATION
     Route: 065
  2. SIMVASTATIN. [Suspect]
     Active Substance: SIMVASTATIN
     Indication: PRODUCT USED FOR UNKNOWN INDICATION
     Dosage: 20 MG, UNK
     Route: 065
  3. SIMVASTATIN. [Suspect]
     Active Substance: SIMVASTATIN
     Dosage: 10 MG, UNK
     Route: 065
  4. ROSUVASTATIN SANDOZ [Suspect]
     Active Substance: ROSUVASTATIN CALCIUM
     Indication: BLOOD CHOLESTEROL
     Dosage: 10 MG, QD
     Route: 048
  5. ESOMEPRAZOLE [Concomitant]
     Active Substance: ESOMEPRAZOLE
     Indication: PRODUCT USED FOR UNKNOWN INDICATION
     Route: 065

REACTIONS (14)
  - Vertigo [Recovering/Resolving]
  - Asthenia [Recovering/Resolving]
  - Cardiac disorder [Recovering/Resolving]
  - Gastrointestinal inflammation [Recovering/Resolving]
  - Pancreatitis [Recovering/Resolving]
  - Myalgia [Unknown]
  - Muscle atrophy [Unknown]
  - Arthritis [Recovering/Resolving]
  - Dizziness [Recovering/Resolving]
  - Nausea [Recovering/Resolving]
  - Enteritis infectious [Unknown]
  - Pain [Recovering/Resolving]
  - Chest pain [Recovering/Resolving]
  - Blood glucose abnormal [Recovering/Resolving]
